FAERS Safety Report 7483776-9 (Version None)
Quarter: 2011Q2

REPORT INFORMATION
  Report Type: 
  Country: None (occurrence: None)
  Receive Date: 20110517
  Receipt Date: 20110512
  Transmission Date: 20111010
  Serious: Yes (Death)
  Sender: FDA-Public Use
  Company Number: PHHY2011US40782

PATIENT
  Sex: Male
  Weight: 68.13 kg

DRUGS (1)
  1. EXJADE [Suspect]
     Indication: ESSENTIAL THROMBOCYTHAEMIA
     Dosage: 500 MG, TID
     Route: 048
     Dates: start: 20100720, end: 20110419

REACTIONS (1)
  - DEATH [None]
